FAERS Safety Report 10600232 (Version 1)
Quarter: 2014Q4

REPORT INFORMATION
  Report Type: Spontaneous
  Country: FR (occurrence: FR)
  Receive Date: 20141122
  Receipt Date: 20141122
  Transmission Date: 20150529
  Serious: Yes (Hospitalization)
  Sender: FDA-Public Use
  Company Number: FR-ASTRAZENECA-2014SE86916

PATIENT
  Age: 11079 Day
  Sex: Male

DRUGS (4)
  1. ARACYTINE [Suspect]
     Active Substance: CYTARABINE
     Route: 042
     Dates: start: 20140519, end: 20140825
  2. LEDERFOLDINE [Suspect]
     Active Substance: LEUCOVORIN
     Route: 065
     Dates: start: 201407
  3. TAVANIC [Suspect]
     Active Substance: LEVOFLOXACIN
     Route: 048
     Dates: start: 201407
  4. INEXIUM [Suspect]
     Active Substance: ESOMEPRAZOLE
     Route: 048
     Dates: start: 201407

REACTIONS (4)
  - Gamma-glutamyltransferase increased [Recovering/Resolving]
  - Blood alkaline phosphatase increased [Recovering/Resolving]
  - Transaminases increased [Recovering/Resolving]
  - Hepatitis [Recovering/Resolving]

NARRATIVE: CASE EVENT DATE: 20140903
